FAERS Safety Report 17908257 (Version 2)
Quarter: 2020Q2

REPORT INFORMATION
  Report Type: Spontaneous
  Country: US (occurrence: US)
  Receive Date: 20200617
  Receipt Date: 20200630
  Transmission Date: 20200714
  Serious: Yes (Hospitalization)
  Sender: FDA-Public Use
  Company Number: US-JNJFOC-20200614798

PATIENT
  Age: 16 Year
  Sex: Female

DRUGS (1)
  1. PARACETAMOL [Suspect]
     Active Substance: ACETAMINOPHEN
     Indication: PRODUCT USED FOR UNKNOWN INDICATION
     Dosage: 906 MG/KG; IN TOTAL
     Route: 048

REACTIONS (6)
  - Pancreatitis acute [Recovering/Resolving]
  - Haematemesis [Recovering/Resolving]
  - Transaminases increased [Recovering/Resolving]
  - Intentional overdose [Recovering/Resolving]
  - Blood bilirubin increased [Recovering/Resolving]
  - International normalised ratio increased [Recovered/Resolved]
